APPROVED DRUG PRODUCT: RITODRINE HYDROCHLORIDE IN DEXTROSE 5% IN PLASTIC CONTAINER
Active Ingredient: RITODRINE HYDROCHLORIDE
Strength: 30MG/100ML
Dosage Form/Route: INJECTABLE;INJECTION
Application: A071438 | Product #001
Applicant: HOSPIRA INC
Approved: Jan 22, 1991 | RLD: No | RS: No | Type: DISCN